FAERS Safety Report 19156797 (Version 1)
Quarter: 2021Q2

REPORT INFORMATION
  Report Type: Spontaneous
  Country: US (occurrence: US)
  Receive Date: 20210419
  Receipt Date: 20210419
  Transmission Date: 20210717
  Serious: No
  Sender: FDA-Public Use
  Company Number: None

PATIENT
  Age: 74 Year
  Sex: Female
  Weight: 63.9 kg

DRUGS (2)
  1. FLUOROMETHALONE OPHTHALMIC SUSPENSION 0.1% [Suspect]
     Active Substance: FLUOROMETHOLONE
     Indication: EYE INFLAMMATION
     Dosage: ?          QUANTITY:1 DROP(S);?
     Route: 047
  2. LORAZEPAM. [Concomitant]
     Active Substance: LORAZEPAM

REACTIONS (7)
  - Headache [None]
  - Ocular discomfort [None]
  - Lip swelling [None]
  - Tooth disorder [None]
  - Gingival discomfort [None]
  - Gait disturbance [None]
  - Confusional state [None]

NARRATIVE: CASE EVENT DATE: 20210417
